FAERS Safety Report 8841313 (Version 3)
Quarter: 2013Q1

REPORT INFORMATION
  Report Type: Spontaneous
  Country: JP (occurrence: JP)
  Receive Date: 20121015
  Receipt Date: 20130116
  Transmission Date: 20140127
  Serious: Yes (Other)
  Sender: FDA-Public Use
  Company Number: JP-PFIZER INC-2012255488

PATIENT
  Age: 66 Year
  Sex: Female

DRUGS (1)
  1. CHAMPIX [Suspect]
     Indication: SMOKING CESSATION THERAPY
     Dosage: UNK
     Route: 048
     Dates: start: 2010

REACTIONS (5)
  - Suicidal ideation [Unknown]
  - Altered state of consciousness [Unknown]
  - Depressive symptom [Not Recovered/Not Resolved]
  - Abdominal discomfort [Recovered/Resolved]
  - Irritability [Unknown]
